FAERS Safety Report 9869900 (Version 1)
Quarter: 2014Q1

REPORT INFORMATION
  Report Type: Spontaneous
  Country: GB (occurrence: None)
  Receive Date: 20140131
  Receipt Date: 20140131
  Transmission Date: 20141002
  Serious: Yes (Other)
  Sender: FDA-Public Use
  Company Number: AUR-APL-2014-00657

PATIENT
  Sex: Female

DRUGS (7)
  1. RIBAVIRIN [Suspect]
     Indication: HEPATITIS C
     Dosage: 1200 MG (600 MG, 2 IN 1 D), UNKNOWN
     Dates: start: 20131018, end: 20131031
  2. PEGYLATED INTERFERON NOS [Suspect]
     Indication: HEPATITIS C
     Route: 058
     Dates: start: 20131018, end: 20131031
  3. INCIVO [Suspect]
     Dosage: 2250 MG (1125 MG, 2 IN 1 D), SUBCUTANEOUS
     Dates: start: 20131018, end: 20131031
  4. CETIRIZINE (CETIRIZINE) [Concomitant]
  5. MILK THISTLE (SILYBUM MARIANUM) [Concomitant]
  6. PARACETAMOL (PARACETAMOL) [Concomitant]
  7. STAR PHARMS CALCICHEW D3 FORTE (COLECALCIFEROL) [Concomitant]

REACTIONS (1)
  - Blood creatinine increased [None]
